FAERS Safety Report 7712917-0 (Version None)
Quarter: 2011Q3

REPORT INFORMATION
  Report Type: 
  Country: None (occurrence: None)
  Receive Date: 20110826
  Receipt Date: 20110812
  Transmission Date: 20111222
  Serious: Yes (Other)
  Sender: FDA-Public Use
  Company Number: PHHY2010CA74736

PATIENT

DRUGS (13)
  1. METFORMIN HCL [Concomitant]
  2. ASPIRIN [Concomitant]
     Dosage: UNK
  3. EZETIMIBE [Concomitant]
     Dosage: UNK
  4. NIFEDIPINE [Concomitant]
     Dosage: UNK
  5. FLUVOXAMINE MALEATE [Concomitant]
     Dosage: UNK
  6. ALISKIREN [Suspect]
     Indication: HYPERTENSION
     Dosage: 150 MG, DAILY
     Route: 048
     Dates: start: 20090706, end: 20091026
  7. ANGIOTENSIN II RECEPTOR BLOCKER [Concomitant]
  8. ALTACE [Concomitant]
     Dosage: UNK
  9. CALCIUM CHANNEL BLOCKERS [Concomitant]
  10. ACE INHIBITOR [Concomitant]
  11. GLYBURIDE [Concomitant]
     Dosage: UNK
  12. NASONEX [Concomitant]
     Dosage: UNK
  13. DILTIAZEM [Concomitant]
     Dosage: UNK

REACTIONS (6)
  - BLOOD PRESSURE DIASTOLIC DECREASED [None]
  - BACK PAIN [None]
  - URINE ALBUMIN/CREATININE RATIO INCREASED [None]
  - VISUAL IMPAIRMENT [None]
  - HEART RATE DECREASED [None]
  - DRUG INEFFECTIVE [None]
